FAERS Safety Report 8442247-3 (Version None)
Quarter: 2012Q2

REPORT INFORMATION
  Report Type: 
  Country: None (occurrence: None)
  Receive Date: 20120615
  Receipt Date: 20120607
  Transmission Date: 20120825
  Serious: Yes (Hospitalization)
  Sender: FDA-Public Use
  Company Number: TR-BAXTER-2012BAX008412

PATIENT
  Age: 61 Year
  Sex: Male
  Weight: 87 kg

DRUGS (1)
  1. KIOVIG [Suspect]
     Indication: GUILLAIN-BARRE SYNDROME
     Route: 042
     Dates: start: 20120524, end: 20120526

REACTIONS (4)
  - NAUSEA [None]
  - VOMITING [None]
  - ABDOMINAL DISTENSION [None]
  - URINARY INCONTINENCE [None]
